FAERS Safety Report 26049267 (Version 1)
Quarter: 2025Q4

REPORT INFORMATION
  Report Type: Spontaneous
  Country: LB (occurrence: LB)
  Receive Date: 20251115
  Receipt Date: 20251115
  Transmission Date: 20260118
  Serious: Yes (Life-Threatening, Other)
  Sender: MACLEODS
  Company Number: LB-MACLEODS PHARMA-MAC2025056321

PATIENT

DRUGS (1)
  1. LIDOCAINE [Suspect]
     Active Substance: LIDOCAINE
     Indication: Procedural pain
     Dosage: TWENTY ML OF 2% LIDOCAINE GEL (LDC) 400 MG
     Route: 061

REACTIONS (6)
  - Local anaesthetic systemic toxicity [Recovered/Resolved]
  - Cardiotoxicity [Recovered/Resolved]
  - Supraventricular tachycardia [Recovered/Resolved]
  - Dyspnoea [Recovered/Resolved]
  - Overdose [Unknown]
  - Palpitations [Recovered/Resolved]
